FAERS Safety Report 6044706-X (Version None)
Quarter: 2009Q1

REPORT INFORMATION
  Report Type: 
  Country: None (occurrence: None)
  Receive Date: 20090120
  Receipt Date: 20090115
  Transmission Date: 20090719
  Serious: Yes (Death)
  Sender: FDA-Public Use
  Company Number: CA-B.I. PHARMACEUTICALS,INC./RIDGEFIELD-2009-CN-00021CN

PATIENT
  Sex: Female

DRUGS (3)
  1. CATAPRES [Suspect]
     Indication: PAIN MANAGEMENT
     Dosage: .15MCG
     Route: 037
     Dates: start: 20081219, end: 20081231
  2. BUPIVACAINE [Concomitant]
     Indication: PAIN MANAGEMENT
     Route: 037
     Dates: start: 20081219, end: 20081231
  3. MORPHINE [Concomitant]
     Indication: PAIN MANAGEMENT
     Route: 037
     Dates: start: 20081219, end: 20081231

REACTIONS (1)
  - RESPIRATORY FAILURE [None]
